FAERS Safety Report 16929337 (Version 1)
Quarter: 2019Q4

REPORT INFORMATION
  Report Type: Spontaneous
  Country: PL (occurrence: PL)
  Receive Date: 20191017
  Receipt Date: 20191017
  Transmission Date: 20200122
  Serious: Yes (Other)
  Sender: FDA-Public Use
  Company Number: PL-TEVA-2019-PL-1122382

PATIENT
  Age: 31 Year
  Sex: Male
  Weight: 97 kg

DRUGS (1)
  1. EQUORAL [Suspect]
     Active Substance: CYCLOSPORINE
     Indication: PSORIASIS
     Dosage: 400 MILLIGRAM
     Route: 048
     Dates: start: 20180516, end: 20180806

REACTIONS (4)
  - Haemoglobin decreased [Recovered/Resolved]
  - Neutropenia [Recovered/Resolved]
  - Blood creatinine increased [Recovered/Resolved]
  - Haemorrhage [Recovered/Resolved]

NARRATIVE: CASE EVENT DATE: 20180806
